FAERS Safety Report 22204805 (Version 1)
Quarter: 2023Q2

REPORT INFORMATION
  Report Type: Spontaneous
  Country: US (occurrence: US)
  Receive Date: 20230413
  Receipt Date: 20230413
  Transmission Date: 20230722
  Serious: Yes (Other)
  Sender: FDA-Public Use
  Company Number: US-CIPLA LTD.-2023US01494

PATIENT

DRUGS (21)
  1. CARBOPLATIN [Suspect]
     Active Substance: CARBOPLATIN
     Indication: Disease progression
     Dosage: 250 MILLIGRAM/SQ. METER, 1 CYCLICAL, DAYS 1-3
     Route: 042
     Dates: start: 20110728, end: 2011
  2. CARBOPLATIN [Suspect]
     Active Substance: CARBOPLATIN
     Indication: Ganglioneuroma
     Dosage: 250 MILLIGRAM/SQ. METER, 1 CYCLICAL, DAYS 1-3
     Route: 042
     Dates: start: 20110822, end: 2011
  3. CARBOPLATIN [Suspect]
     Active Substance: CARBOPLATIN
     Indication: Syringomyelia
     Dosage: 250 MILLIGRAM/SQ. METER, 1 CYCLICAL, DAYS 1-3
     Route: 042
     Dates: start: 20110919, end: 2011
  4. CARBOPLATIN [Suspect]
     Active Substance: CARBOPLATIN
     Dosage: 250 MILLIGRAM/SQ. METER, 1 CYCLICAL, DAYS 1-3
     Route: 042
     Dates: start: 20111024, end: 2011
  5. CARBOPLATIN [Suspect]
     Active Substance: CARBOPLATIN
     Dosage: 250 MILLIGRAM/SQ. METER, 1 CYCLICAL, DAYS 1-3
     Route: 042
     Dates: start: 20111117, end: 2011
  6. CARBOPLATIN [Suspect]
     Active Substance: CARBOPLATIN
     Dosage: 250 MILLIGRAM/SQ. METER, 1 CYCLICAL, DAYS 1-3
     Route: 042
     Dates: start: 20111219, end: 2011
  7. CARBOPLATIN [Suspect]
     Active Substance: CARBOPLATIN
     Dosage: 250 MILLIGRAM/SQ. METER, 1 CYCLICAL, DAYS 1-3
     Route: 042
     Dates: start: 20120116
  8. TOPOTECAN [Suspect]
     Active Substance: TOPOTECAN HYDROCHLORIDE
     Indication: Disease progression
     Dosage: 0.5 MILLIGRAM/SQ. METER, 1 CYCLICAL, DAYS 1-3
     Route: 042
     Dates: start: 20110728, end: 2011
  9. TOPOTECAN [Suspect]
     Active Substance: TOPOTECAN HYDROCHLORIDE
     Indication: Ganglioneuroma
     Dosage: 0.5 MILLIGRAM/SQ. METER, 1 CYCLICAL, DAYS 1-3
     Route: 042
     Dates: start: 20110822, end: 2011
  10. TOPOTECAN [Suspect]
     Active Substance: TOPOTECAN HYDROCHLORIDE
     Indication: Syringomyelia
     Dosage: 0.5 MILLIGRAM/SQ. METER, 1 CYCLICAL, DAYS 1-3
     Route: 042
     Dates: start: 20110919, end: 2011
  11. TOPOTECAN [Suspect]
     Active Substance: TOPOTECAN HYDROCHLORIDE
     Dosage: 0.5 MILLIGRAM/SQ. METER, 1 CYCLICAL, DAYS 1-3
     Route: 042
     Dates: start: 20111024, end: 2011
  12. TOPOTECAN [Suspect]
     Active Substance: TOPOTECAN HYDROCHLORIDE
     Dosage: 0.5 MILLIGRAM/SQ. METER, 1 CYCLICAL, DAYS 1-3
     Route: 042
     Dates: start: 20111117, end: 2011
  13. TOPOTECAN [Suspect]
     Active Substance: TOPOTECAN HYDROCHLORIDE
     Dosage: 0.5 MILLIGRAM/SQ. METER, 1 CYCLICAL, DAYS 1-3
     Route: 042
     Dates: start: 20111219, end: 2011
  14. TOPOTECAN [Suspect]
     Active Substance: TOPOTECAN HYDROCHLORIDE
     Dosage: 0.5 MILLIGRAM/SQ. METER, 1 CYCLICAL, DAYS 1-3
     Route: 042
     Dates: start: 20120116
  15. IFOSFAMIDE [Suspect]
     Active Substance: IFOSFAMIDE
     Indication: Ganglioneuroma
     Dosage: 1800 MILLIGRAM/SQ. METER, 1 CYCLICAL, DAYS 1-5
     Route: 042
     Dates: start: 20110728, end: 2011
  16. IFOSFAMIDE [Suspect]
     Active Substance: IFOSFAMIDE
     Indication: Syringomyelia
     Dosage: 1800 MILLIGRAM/SQ. METER, 1 CYCLICAL, DAYS 1-5
     Route: 042
     Dates: start: 20110822, end: 2011
  17. IFOSFAMIDE [Suspect]
     Active Substance: IFOSFAMIDE
     Indication: Disease progression
     Dosage: 1800 MILLIGRAM/SQ. METER, 1 CYCLICAL, DAYS 1-5
     Route: 042
     Dates: start: 20110919, end: 2011
  18. IFOSFAMIDE [Suspect]
     Active Substance: IFOSFAMIDE
     Dosage: 1800 MILLIGRAM/SQ. METER, 1 CYCLICAL, DAYS 1-5
     Route: 042
     Dates: start: 20111024, end: 2011
  19. IFOSFAMIDE [Suspect]
     Active Substance: IFOSFAMIDE
     Dosage: 1800 MILLIGRAM/SQ. METER, 1 CYCLICAL, DAYS 1-5
     Route: 042
     Dates: start: 20111117, end: 2011
  20. IFOSFAMIDE [Suspect]
     Active Substance: IFOSFAMIDE
     Dosage: 1800 MILLIGRAM/SQ. METER, 1 CYCLICAL, DAYS 1-5
     Route: 042
     Dates: start: 20111219, end: 2011
  21. IFOSFAMIDE [Suspect]
     Active Substance: IFOSFAMIDE
     Dosage: 1800 MILLIGRAM/SQ. METER, 1 CYCLICAL, DAYS 1-5
     Route: 042
     Dates: start: 20120116

REACTIONS (7)
  - Cellulitis [Recovered/Resolved]
  - Anal infection [Recovered/Resolved]
  - Febrile neutropenia [Recovered/Resolved]
  - Haematotoxicity [Unknown]
  - Mucosal inflammation [Recovered/Resolved]
  - Pancytopenia [Recovered/Resolved]
  - Infection [Unknown]

NARRATIVE: CASE EVENT DATE: 20110101
